FAERS Safety Report 21604679 (Version 1)
Quarter: 2022Q4

REPORT INFORMATION
  Report Type: Spontaneous
  Country: DE (occurrence: DE)
  Receive Date: 20221116
  Receipt Date: 20221116
  Transmission Date: 20230113
  Serious: Yes (Other)
  Sender: FDA-Public Use
  Company Number: None

PATIENT
  Age: 24 Year
  Sex: Male
  Weight: 67 kg

DRUGS (2)
  1. PAROXETINE [Suspect]
     Active Substance: PAROXETINE
     Indication: Anxiety disorder
     Dosage: 10MG, THERAPY START DATE : NASK
     Dates: end: 202109
  2. PAROXETINE [Suspect]
     Active Substance: PAROXETINE
     Indication: Panic attack

REACTIONS (6)
  - Erectile dysfunction [Recovered/Resolved with Sequelae]
  - Emotional poverty [Recovered/Resolved with Sequelae]
  - Anhedonia [Recovered/Resolved with Sequelae]
  - Penile vascular disorder [Recovered/Resolved with Sequelae]
  - Loss of libido [Recovered/Resolved with Sequelae]
  - Sexual dysfunction [Recovered/Resolved with Sequelae]

NARRATIVE: CASE EVENT DATE: 20210601
